FAERS Safety Report 8189334-5 (Version None)
Quarter: 2012Q1

REPORT INFORMATION
  Report Type: 
  Country: None (occurrence: None)
  Receive Date: 20120307
  Receipt Date: 20120227
  Transmission Date: 20120608
  Serious: Yes (Hospitalization)
  Sender: FDA-Public Use
  Company Number: US-AMGEN-USASP2012011645

PATIENT
  Age: 50 Year
  Sex: Female

DRUGS (1)
  1. ENBREL [Suspect]
     Indication: RHEUMATOID ARTHRITIS
     Dosage: 50 MG, Q2WK
     Route: 058
     Dates: start: 20000401

REACTIONS (16)
  - SPINAL DISORDER [None]
  - JOINT SWELLING [None]
  - IMPAIRED HEALING [None]
  - ARTHRALGIA [None]
  - DENTAL CARIES [None]
  - CHONDROPATHY [None]
  - SPINAL FUSION SURGERY [None]
  - INFECTION [None]
  - PYREXIA [None]
  - ARTIFICIAL CROWN PROCEDURE [None]
  - TENDON OPERATION [None]
  - JOINT EFFUSION [None]
  - LYMPHOEDEMA [None]
  - JOINT ARTHROPLASTY [None]
  - FLUID RETENTION [None]
  - RHEUMATOID ARTHRITIS [None]
